FAERS Safety Report 5706304-4 (Version None)
Quarter: 2008Q2

REPORT INFORMATION
  Report Type: 
  Country: None (occurrence: None)
  Receive Date: 20080328
  Receipt Date: 20071009
  Transmission Date: 20081010
  Serious: Yes (Other)
  Sender: FDA-Public Use
  Company Number: US-WYE-H00640107

PATIENT
  Age: 49 Year
  Sex: Male
  Weight: 102.15 kg

DRUGS (1)
  1. ALAVERT [Suspect]
     Indication: HYPERSENSITIVITY
     Dosage: 1 TABLET 2X PER 1 DAY, ORAL
     Route: 048
     Dates: start: 20070901, end: 20070905

REACTIONS (1)
  - DRUG EFFECT DECREASED [None]
